FAERS Safety Report 6404244-9 (Version None)
Quarter: 2009Q4

REPORT INFORMATION
  Report Type: 
  Country: None (occurrence: None)
  Receive Date: 20091016
  Receipt Date: 20091008
  Transmission Date: 20100525
  Serious: Yes (Hospitalization, Congenital Anomaly)
  Sender: FDA-Public Use
  Company Number: A0681186A

PATIENT
  Sex: Male
  Weight: 2.7 kg

DRUGS (6)
  1. PAXIL [Suspect]
     Indication: DEPRESSION
     Dosage: 20MG TWICE PER DAY
     Dates: start: 20000901, end: 20001201
  2. VITAMIN TAB [Concomitant]
  3. ZESTRIL [Concomitant]
     Dates: start: 20000901, end: 20010801
  4. TRAZODONE [Concomitant]
     Dates: start: 20000901
  5. WATER PILL [Concomitant]
  6. GLUCOPHAGE [Concomitant]

REACTIONS (5)
  - ATRIAL SEPTAL DEFECT [None]
  - DRUG EXPOSURE DURING PREGNANCY [None]
  - DYSMORPHISM [None]
  - PATENT DUCTUS ARTERIOSUS [None]
  - TRICUSPID VALVE INCOMPETENCE [None]
